FAERS Safety Report 10780477 (Version 1)
Quarter: 2015Q1

REPORT INFORMATION
  Report Type: Spontaneous
  Country: US (occurrence: None)
  Receive Date: 20150206
  Receipt Date: 20150206
  Transmission Date: 20150721
  Serious: Yes (Other)
  Sender: FDA-Public Use
  Company Number: None

PATIENT
  Age: 62 Year
  Sex: Male
  Weight: 103 kg

DRUGS (26)
  1. ONDANSETRON ODT [Concomitant]
     Active Substance: ONDANSETRON
  2. ALTEPLASE [Concomitant]
     Active Substance: ALTEPLASE
  3. ALLOPURINOL. [Concomitant]
     Active Substance: ALLOPURINOL
  4. LAMIVUDINE. [Concomitant]
     Active Substance: LAMIVUDINE
  5. NS 1L [Concomitant]
  6. GLIPIZIDE. [Concomitant]
     Active Substance: GLIPIZIDE
  7. DEXTROSE. [Concomitant]
     Active Substance: DEXTROSE
  8. GADOBENATE DIMEGLUMINE [Concomitant]
     Active Substance: GADOBENATE DIMEGLUMINE
  9. CHLORAMBUCIL [Concomitant]
     Active Substance: CHLORAMBUCIL
  10. FLUCONAZOLE. [Concomitant]
     Active Substance: FLUCONAZOLE
  11. ENOXAPARIN [Concomitant]
     Active Substance: ENOXAPARIN
  12. IMMUNE GLOBULIN [Concomitant]
     Active Substance: HUMAN IMMUNOGLOBULIN G
  13. OXYCODONE/APAP [Concomitant]
     Active Substance: ACETAMINOPHEN\OXYCODONE HYDROCHLORIDE
  14. CEFAZOLIN 1GM/DEXTROSE IV [Concomitant]
  15. DIPHENHYDRAMINE [Concomitant]
     Active Substance: DIPHENHYDRAMINE
  16. MEPERIDINE HCL [Concomitant]
     Active Substance: MEPERIDINE HYDROCHLORIDE
  17. ACETAMINOPHEN. [Concomitant]
     Active Substance: ACETAMINOPHEN
  18. INSULIN GLARGINE [Concomitant]
     Active Substance: INSULIN GLARGINE
  19. INSULIN REGULAR HUMAN PER PROTOCOL [Concomitant]
  20. METHYLPREDNISOLONE SODIUM SUCCINATE. [Concomitant]
     Active Substance: METHYLPREDNISOLONE SODIUM SUCCINATE
  21. ERTAPENEM [Concomitant]
     Active Substance: ERTAPENEM
  22. GAZYVA [Suspect]
     Active Substance: OBINUTUZUMAB
     Indication: CHRONIC LYMPHOCYTIC LEUKAEMIA
     Route: 042
  23. CEFAZOLIN 2GM/DEXTROSE IV [Concomitant]
  24. INSULIN LISPRO [Concomitant]
     Active Substance: INSULIN LISPRO
  25. ACYCLOVIR. [Concomitant]
     Active Substance: ACYCLOVIR
  26. RANITIDINE HCL [Concomitant]
     Active Substance: RANITIDINE HYDROCHLORIDE

REACTIONS (1)
  - Chills [None]

NARRATIVE: CASE EVENT DATE: 20141107
